FAERS Safety Report 8677659 (Version 4)
Quarter: 2013Q1

REPORT INFORMATION
  Report Type: Spontaneous
  Country: US (occurrence: US)
  Receive Date: 20120723
  Receipt Date: 20130327
  Transmission Date: 20140127
  Serious: Yes (Other)
  Sender: FDA-Public Use
  Company Number: US-PFIZER INC-2012175962

PATIENT
  Age: 67 Year
  Sex: Female
  Weight: 50.8 kg

DRUGS (13)
  1. XALKORI [Suspect]
     Indication: LUNG NEOPLASM MALIGNANT
     Dosage: 250 MG, 2X/DAY
     Route: 048
     Dates: end: 201210
  2. XALKORI [Suspect]
     Dosage: 250 MG, 2X/DAY
     Route: 048
     Dates: start: 201212
  3. OXYCODONE HYDROCHLORIDE [Concomitant]
     Dosage: UNK
  4. SENOKOT [Concomitant]
     Dosage: 8.6 MG, UNK
  5. ECONAZOLE [Concomitant]
     Dosage: 1 %, UNK
  6. GABAPENTIN [Concomitant]
     Dosage: 100 MG, UNK
  7. BACITRACIN [Concomitant]
     Dosage: 500 G, UNK
  8. MAGNESIUM [Concomitant]
     Dosage: 30 MG, UNK
  9. ESTRACE VAGINAL CREAM [Concomitant]
     Dosage: 0.1 MG/GM, UNK
  10. CALCIUM [Concomitant]
     Dosage: 500, UNK
  11. FOLIC ACID [Concomitant]
     Dosage: UNK
  12. COLACE [Concomitant]
     Dosage: 100 MG, UNK
  13. TYLENOL [Concomitant]
     Dosage: 325 MG, UNK

REACTIONS (9)
  - Faecaloma [Unknown]
  - Constipation [Unknown]
  - Oedema peripheral [Unknown]
  - Weight increased [Unknown]
  - Paronychia [Unknown]
  - Nausea [Unknown]
  - Vomiting [Unknown]
  - Malaise [Unknown]
  - Visual impairment [Unknown]
